FAERS Safety Report 17261513 (Version 4)
Quarter: 2020Q3

REPORT INFORMATION
  Report Type: Spontaneous
  Country: US (occurrence: US)
  Receive Date: 20200113
  Receipt Date: 20200923
  Transmission Date: 20201102
  Serious: Yes (Other)
  Sender: FDA-Public Use
  Company Number: US-GILEAD-2020-0446117

PATIENT
  Age: 47 Year
  Sex: Male
  Weight: 76.64 kg

DRUGS (35)
  1. DILTIAZEM. [Concomitant]
     Active Substance: DILTIAZEM
  2. VITAMIN D2 [Concomitant]
     Active Substance: ERGOCALCIFEROL
  3. TRIUMEQ [Concomitant]
     Active Substance: ABACAVIR SULFATE\DOLUTEGRAVIR SODIUM\LAMIVUDINE
  4. PROCRIT [Concomitant]
     Active Substance: ERYTHROPOIETIN
  5. TACROLIMUS. [Concomitant]
     Active Substance: TACROLIMUS
  6. MYCOPHENOLATE [Concomitant]
     Active Substance: MYCOPHENOLIC ACID
  7. LASIX [Concomitant]
     Active Substance: FUROSEMIDE
  8. AMBIEN [Concomitant]
     Active Substance: ZOLPIDEM TARTRATE
  9. XANAX [Concomitant]
     Active Substance: ALPRAZOLAM
  10. IBANDRONATE SODIUM. [Concomitant]
     Active Substance: IBANDRONATE SODIUM
  11. CARDIZEM CD [Concomitant]
     Active Substance: DILTIAZEM HYDROCHLORIDE
  12. LEXAPRO [Concomitant]
     Active Substance: ESCITALOPRAM OXALATE
  13. FLONASE [Concomitant]
     Active Substance: FLUTICASONE PROPIONATE
  14. TIVICAY [Concomitant]
     Active Substance: DOLUTEGRAVIR SODIUM
  15. PROCARDIA [Concomitant]
     Active Substance: NIFEDIPINE
  16. KALETRA [Concomitant]
     Active Substance: LOPINAVIR\RITONAVIR
  17. EPZICOM [Concomitant]
     Active Substance: ABACAVIR SULFATE\LAMIVUDINE
  18. TYLENOL [Concomitant]
     Active Substance: ACETAMINOPHEN
  19. EPIVIR [Concomitant]
     Active Substance: LAMIVUDINE
  20. NORMODYNE [Concomitant]
     Active Substance: LABETALOL HYDROCHLORIDE
  21. ISENTRESS [Concomitant]
     Active Substance: RALTEGRAVIR POTASSIUM
  22. RALTEGRAVIR. [Concomitant]
     Active Substance: RALTEGRAVIR
  23. PREDNISONE. [Concomitant]
     Active Substance: PREDNISONE
  24. SINGULAIR [Concomitant]
     Active Substance: MONTELUKAST SODIUM
  25. PROTONIX [OMEPRAZOLE] [Concomitant]
     Active Substance: OMEPRAZOLE
  26. TESTOPEL [Concomitant]
     Active Substance: TESTOSTERONE
  27. CYCLOBENZAPRINE. [Concomitant]
     Active Substance: CYCLOBENZAPRINE
  28. PANTOPRAZOLE SODIUM. [Concomitant]
     Active Substance: PANTOPRAZOLE SODIUM
  29. JANUVIA [Concomitant]
     Active Substance: SITAGLIPTIN PHOSPHATE
  30. BACTRIM [Concomitant]
     Active Substance: SULFAMETHOXAZOLE\TRIMETHOPRIM
  31. ATRIPLA [Suspect]
     Active Substance: EFAVIRENZ\EMTRICITABINE\TENOFOVIR DISOPROXIL FUMARATE
     Indication: HIV INFECTION
     Dosage: 1 DOSAGE FORM, QD
     Route: 048
     Dates: start: 200712, end: 201411
  32. MONTELUKAST SODIUM. [Concomitant]
     Active Substance: MONTELUKAST SODIUM
  33. ZOLPIDEM TARTRATE. [Concomitant]
     Active Substance: ZOLPIDEM TARTRATE
  34. SUSTIVA [Concomitant]
     Active Substance: EFAVIRENZ
  35. ZANTAC [Concomitant]
     Active Substance: RANITIDINE HYDROCHLORIDE

REACTIONS (14)
  - Osteopenia [Recovered/Resolved]
  - Chronic kidney disease [Not Recovered/Not Resolved]
  - New onset diabetes after transplantation [Unknown]
  - Pain [Not Recovered/Not Resolved]
  - Anhedonia [Unknown]
  - Osteonecrosis [Unknown]
  - Tooth loss [Recovered/Resolved]
  - Acute kidney injury [Unknown]
  - Renal transplant [Unknown]
  - Anxiety [Not Recovered/Not Resolved]
  - Renal tubular disorder [Unknown]
  - Economic problem [Unknown]
  - Bone density decreased [Unknown]
  - Emotional distress [Not Recovered/Not Resolved]

NARRATIVE: CASE EVENT DATE: 20100713
